FAERS Safety Report 9071329 (Version 1)
Quarter: 2013Q1

REPORT INFORMATION
  Report Type: Report from Study
  Country: US (occurrence: US)
  Receive Date: 20130129
  Receipt Date: 20130129
  Transmission Date: 20140127
  Serious: No
  Sender: FDA-Public Use
  Company Number: US-ABBOTT-12P-163-0921041-00

PATIENT
  Sex: Female
  Weight: 79.45 kg

DRUGS (5)
  1. HUMIRA 40 MG/ 0.8 ML PRE-FILLED SYRINGE [Suspect]
     Indication: PSORIATIC ARTHROPATHY
     Dates: start: 2007
  2. HUMIRA 40 MG/ 0.8 ML PRE-FILLED SYRINGE [Suspect]
  3. METHOTREXATE [Concomitant]
     Indication: PSORIATIC ARTHROPATHY
  4. IRON [Concomitant]
     Indication: BLOOD IRON DECREASED
  5. FISH OIL [Concomitant]
     Indication: NUTRITIONAL SUPPLEMENTATION

REACTIONS (1)
  - Herpes zoster [Recovered/Resolved]
